FAERS Safety Report 25439567 (Version 1)
Quarter: 2025Q2

REPORT INFORMATION
  Report Type: Report from Study
  Country: CA (occurrence: CA)
  Receive Date: 20250616
  Receipt Date: 20250616
  Transmission Date: 20250717
  Serious: Yes (Other)
  Sender: JOHNSON AND JOHNSON
  Company Number: CA-JNJFOC-20250429264

PATIENT
  Age: 12 Year
  Sex: Female

DRUGS (2)
  1. REMICADE [Suspect]
     Active Substance: INFLIXIMAB
     Indication: Colitis ulcerative
     Route: 041
  2. REMICADE [Suspect]
     Active Substance: INFLIXIMAB
     Dosage: THERAPY START DATE ALSO REPORTED AS 21-AUG-2024
     Route: 041
     Dates: start: 20240809

REACTIONS (3)
  - Colitis ulcerative [Recovering/Resolving]
  - Pharyngitis streptococcal [Unknown]
  - Arthralgia [Unknown]

NARRATIVE: CASE EVENT DATE: 20250419
